FAERS Safety Report 8530880-X (Version None)
Quarter: 2012Q3

REPORT INFORMATION
  Report Type: 
  Country: None (occurrence: None)
  Receive Date: 20120723
  Receipt Date: 20120711
  Transmission Date: 20120928
  Serious: Yes (Hospitalization)
  Sender: FDA-Public Use
  Company Number: FR-ROCHE-1087309

PATIENT
  Age: 62 Year
  Sex: Female

DRUGS (13)
  1. OKIMUS [Concomitant]
  2. INCIVO [Suspect]
     Indication: HEPATITIS C
     Route: 048
     Dates: start: 20110307, end: 20110531
  3. REPAGLINIDE [Concomitant]
  4. PLAVIX [Concomitant]
  5. LERCANIDIPINE [Concomitant]
  6. NEORECORMON [Concomitant]
  7. PEGASYS [Suspect]
     Indication: HEPATITIS C
     Route: 058
  8. RIBAVIRIN [Suspect]
     Indication: HEPATITIS C
     Route: 048
     Dates: end: 20110927
  9. VALSARTAN  AND HYDROCHLOROTHIAZIDE [Concomitant]
  10. PRAXILENE [Concomitant]
  11. VICTOZA [Concomitant]
  12. NEXIUM [Concomitant]
  13. NEUPOGEN [Concomitant]

REACTIONS (1)
  - LYMPHADENOPATHY MEDIASTINAL [None]
